FAERS Safety Report 10108953 (Version 1)
Quarter: 2014Q2

REPORT INFORMATION
  Report Type: Spontaneous
  Country: US (occurrence: US)
  Receive Date: 20140425
  Receipt Date: 20140425
  Transmission Date: 20141212
  Serious: No
  Sender: FDA-Public Use
  Company Number: US-JNJFOC-20140319327

PATIENT
  Sex: Female
  Weight: 135.17 kg

DRUGS (6)
  1. INVEGA SUSTENNA [Suspect]
     Indication: BIPOLAR DISORDER
     Dosage: 3 WEEKS AGO
     Route: 030
     Dates: start: 201403
  2. INVEGA ER [Suspect]
     Indication: BIPOLAR DISORDER
     Route: 048
     Dates: start: 2013
  3. ZOLOFT [Concomitant]
     Indication: PRODUCT USED FOR UNKNOWN INDICATION
     Route: 048
     Dates: start: 2013, end: 201403
  4. COGENTIN [Concomitant]
     Indication: ADVERSE DRUG REACTION
     Route: 065
  5. BUSPIRONE HCL [Concomitant]
     Indication: PRODUCT USED FOR UNKNOWN INDICATION
     Route: 048
  6. ZOLOFT [Concomitant]
     Indication: INSOMNIA
     Route: 048
     Dates: start: 201403

REACTIONS (13)
  - Parkinsonism [Not Recovered/Not Resolved]
  - Adverse event [Unknown]
  - Off label use [Not Recovered/Not Resolved]
  - Blood pressure fluctuation [Not Recovered/Not Resolved]
  - Blood glucose abnormal [Not Recovered/Not Resolved]
  - Trismus [Not Recovered/Not Resolved]
  - Muscle spasms [Not Recovered/Not Resolved]
  - Weight increased [Not Recovered/Not Resolved]
  - Increased appetite [Not Recovered/Not Resolved]
  - Constipation [Not Recovered/Not Resolved]
  - Dry mouth [Unknown]
  - Tremor [Unknown]
  - Chest pain [Unknown]
